FAERS Safety Report 7507106-9 (Version None)
Quarter: 2011Q2

REPORT INFORMATION
  Report Type: 
  Country: None (occurrence: None)
  Receive Date: 20110526
  Receipt Date: 20110517
  Transmission Date: 20111010
  Serious: Yes (Hospitalization)
  Sender: FDA-Public Use
  Company Number: CO-ELI_LILLY_AND_COMPANY-CO201105001722

PATIENT
  Age: 18 Year
  Sex: Female
  Weight: 49.887 kg

DRUGS (3)
  1. HUMALOG [Suspect]
     Indication: TYPE 2 DIABETES MELLITUS
     Dosage: 6 IU, TID
     Dates: start: 20110430, end: 20110430
  2. LANTUS [Concomitant]
     Dosage: 23 IU, UNK
  3. HUMALOG [Suspect]
     Dosage: 6 IU, TID
     Dates: start: 20110504

REACTIONS (2)
  - HYPERGLYCAEMIA [None]
  - DRUG DOSE OMISSION [None]
